FAERS Safety Report 21935602 (Version 1)
Quarter: 2023Q1

REPORT INFORMATION
  Report Type: Spontaneous
  Country: US (occurrence: None)
  Receive Date: 20230131
  Receipt Date: 20230131
  Transmission Date: 20230417
  Serious: Yes (Disabling)
  Sender: FDA-Public Use
  Company Number: None

PATIENT
  Age: 61 Year
  Sex: Female
  Weight: 90 kg

DRUGS (7)
  1. ZOLEDRONIC ACID [Suspect]
     Active Substance: ZOLEDRONIC ACID
     Indication: Osteoporosis
     Route: 042
     Dates: start: 20221020
  2. PROZAC [Concomitant]
  3. simvistatin [Concomitant]
  4. ANASTROZOLE [Concomitant]
  5. ASPIRIN [Concomitant]
     Active Substance: ASPIRIN
  6. VITAMIN D3 [Concomitant]
     Active Substance: CHOLECALCIFEROL
  7. FISH OIL [Concomitant]
     Active Substance: FISH OIL

REACTIONS (5)
  - Pyrexia [None]
  - Chills [None]
  - Bone pain [None]
  - Infusion related reaction [None]
  - Uveitis [None]

NARRATIVE: CASE EVENT DATE: 20221020
